FAERS Safety Report 7710268-1 (Version None)
Quarter: 2011Q3

REPORT INFORMATION
  Report Type: 
  Country: None (occurrence: None)
  Receive Date: 20110825
  Receipt Date: 20110823
  Transmission Date: 20111222
  Serious: Yes (Other)
  Sender: FDA-Public Use
  Company Number: US-BRISTOL-MYERS SQUIBB COMPANY-15997596

PATIENT
  Age: 71 Year
  Sex: Male

DRUGS (2)
  1. AZILECT [Concomitant]
  2. SPRYCEL [Suspect]
     Dates: start: 20090101

REACTIONS (2)
  - PARKINSON'S DISEASE [None]
  - DISCOMFORT [None]
